FAERS Safety Report 8762375 (Version 5)
Quarter: 2013Q3

REPORT INFORMATION
  Report Type: Report from Study
  Country: JP (occurrence: JP)
  Receive Date: 20120830
  Receipt Date: 20130827
  Transmission Date: 20140515
  Serious: Yes (Hospitalization)
  Sender: FDA-Public Use
  Company Number: JP-VERTEX PHARMACEUTICAL INC.-AE-2012-009396

PATIENT
  Age: 69 Year
  Sex: Male

DRUGS (20)
  1. VX-950 (TELAPREVIR) [Suspect]
     Indication: HEPATITIS C
     Dosage: 1500 MG, QD
     Route: 048
     Dates: start: 20120509, end: 20120624
  2. VX-950 (TELAPREVIR) [Suspect]
     Dosage: 1000 MG, QD
     Route: 048
     Dates: start: 20120625, end: 20120731
  3. RIBAVIRIN [Suspect]
     Indication: HEPATITIS C
     Dosage: 400 MG, QD
     Route: 048
     Dates: start: 20120509, end: 20120520
  4. RIBAVIRIN [Suspect]
     Dosage: 200 MG, QD
     Route: 048
     Dates: start: 20120521, end: 20120612
  5. RIBAVIRIN [Suspect]
     Dosage: 200 MG, QOD
     Route: 048
     Dates: start: 20120613, end: 20120710
  6. RIBAVIRIN [Suspect]
     Dosage: 200 MG ONCE EVERY 3 DAYS
     Route: 048
     Dates: start: 20120711, end: 20120902
  7. RIBAVIRIN [Suspect]
     Dosage: 200 MG, QOD
     Route: 048
     Dates: start: 20120903, end: 20120916
  8. RIBAVIRIN [Suspect]
     Dosage: 200 MG, QD
     Route: 048
     Dates: start: 20120917, end: 20121014
  9. RIBAVIRIN [Suspect]
     Dosage: 400 MG, QD
     Route: 048
     Dates: start: 20121015
  10. PEGINTERFERON ALFA-2B [Suspect]
     Indication: HEPATITIS C
     Dosage: 1.5 ?G/KG, QW
     Route: 058
     Dates: start: 20120509
  11. NORVASC [Concomitant]
     Dosage: 5 MG, QD
     Route: 048
     Dates: end: 20120610
  12. MICARDIS [Concomitant]
     Dosage: 40 MG, QD
     Route: 048
     Dates: end: 20120529
  13. GASTER D [Concomitant]
     Dosage: 40 MG, QD
     Route: 048
     Dates: end: 20120829
  14. MYSLEE [Concomitant]
     Dosage: 10 MG, QD
     Route: 048
  15. EURODIN [Concomitant]
     Dosage: 2 MG, QD
     Route: 048
  16. HARNAL D [Concomitant]
     Dosage: 0.2 MG, QD
     Route: 048
  17. PHYSIO 140 [Concomitant]
     Dosage: 500 ML, QD
     Route: 042
     Dates: start: 20120523, end: 20120730
  18. DIFLAL [Concomitant]
     Dosage: UNK, PRN
     Route: 051
     Dates: start: 20120528, end: 20120820
  19. ADALAT CR [Concomitant]
     Dosage: 10 MG, QD
     Route: 048
     Dates: start: 20120918
  20. OLMETEC [Concomitant]
     Dosage: 20 MG, QD
     Route: 048
     Dates: start: 20120924

REACTIONS (2)
  - Renal impairment [Recovered/Resolved]
  - Renal impairment [Recovered/Resolved]
